FAERS Safety Report 4581400-6 (Version None)
Quarter: 2005Q1

REPORT INFORMATION
  Report Type: 
  Country: None (occurrence: None)
  Receive Date: 20050214
  Receipt Date: 20041015
  Transmission Date: 20050727
  Serious: Yes (Hospitalization)
  Sender: FDA-Public Use
  Company Number: US-GLAXOSMITHKLINE-A0530027A

PATIENT
  Age: 45 Year
  Sex: Male

DRUGS (4)
  1. LAMICTAL [Suspect]
     Indication: MOOD SWINGS
     Dosage: 100MG PER DAY
     Route: 048
     Dates: start: 20040901
  2. BEXTRA [Concomitant]
  3. TOPAMAX [Concomitant]
  4. IMITREX [Concomitant]

REACTIONS (6)
  - MOUTH ULCERATION [None]
  - OROPHARYNGEAL SWELLING [None]
  - RASH [None]
  - STEVENS-JOHNSON SYNDROME [None]
  - SWELLING FACE [None]
  - SWOLLEN TONGUE [None]
